FAERS Safety Report 7146305 (Version 3)
Quarter: 2013Q4

REPORT INFORMATION
  Report Type: Spontaneous
  Country: US (occurrence: US)
  Receive Date: 20091012
  Receipt Date: 20131117
  Transmission Date: 20140711
  Serious: No
  Sender: FDA-Public Use
  Company Number: US-ASTRAZENECA-2009SE05493

PATIENT
  Age: 83 Year
  Sex: Female

DRUGS (4)
  1. SYMBICORT [Suspect]
     Indication: EMPHYSEMA
     Dosage: 640, TWO TIMES A DAY
     Route: 055
  2. SYMBICORT [Suspect]
     Indication: EMPHYSEMA
     Dosage: 2 PUFFS TWO TIMES A DAY
     Route: 055
  3. SYMBICORT [Suspect]
     Indication: EMPHYSEMA
     Dosage: 160-4.50 BID
     Route: 055
  4. SPIRIVA [Concomitant]
     Indication: EMPHYSEMA

REACTIONS (3)
  - Amnesia [Unknown]
  - Incorrect dosage administered [Unknown]
  - Intentional drug misuse [Unknown]
